FAERS Safety Report 5410999-2 (Version None)
Quarter: 2007Q3

REPORT INFORMATION
  Report Type: 
  Country: None (occurrence: None)
  Receive Date: 20070810
  Receipt Date: 20070727
  Transmission Date: 20080115
  Serious: Yes (Other)
  Sender: FDA-Public Use
  Company Number: SE-ELI_LILLY_AND_COMPANY-SE200705006833

PATIENT
  Age: 39 Year
  Sex: Male

DRUGS (7)
  1. CYMBALTA [Suspect]
     Indication: DEPRESSION
     Dosage: 120 MG, DAILY (1/D)
     Route: 048
     Dates: start: 20061108, end: 20070118
  2. CYMBALTA [Suspect]
     Dosage: UNK, UNKNOWN
     Route: 048
     Dates: start: 20050501, end: 20061108
  3. PROPAVAN [Concomitant]
     Dosage: UNK, UNKNOWN
     Route: 065
  4. AKINETON [Concomitant]
     Dosage: UNK, UNKNOWN
     Route: 065
  5. ANTABUSE [Concomitant]
     Dosage: UNK, UNKNOWN
     Route: 065
  6. THERALEN [Concomitant]
     Dosage: UNK, UNKNOWN
     Route: 065
  7. HALDOL DEPOT [Concomitant]
     Dosage: UNK, UNKNOWN
     Route: 065

REACTIONS (1)
  - CONGESTIVE CARDIOMYOPATHY [None]
